FAERS Safety Report 10094045 (Version 1)
Quarter: 2014Q2

REPORT INFORMATION
  Report Type: Spontaneous
  Country: CA (occurrence: CA)
  Receive Date: 20140422
  Receipt Date: 20140422
  Transmission Date: 20141212
  Serious: Yes (Other)
  Sender: FDA-Public Use
  Company Number: CA-AMGEN INC.-CANSP2014028403

PATIENT
  Age: 54 Year
  Sex: Female

DRUGS (3)
  1. ENBREL [Suspect]
     Indication: ANKYLOSING SPONDYLITIS
     Dosage: 50 MG, UNK
     Route: 065
     Dates: start: 20140212
  2. WARFARIN [Concomitant]
     Dosage: UNK
  3. ROSUVASTATIN [Concomitant]
     Dosage: 10 MG, UNK

REACTIONS (4)
  - Blood urine present [Not Recovered/Not Resolved]
  - Cystitis [Not Recovered/Not Resolved]
  - Nasal discomfort [Not Recovered/Not Resolved]
  - Rhinorrhoea [Not Recovered/Not Resolved]
